FAERS Safety Report 8144013-5 (Version None)
Quarter: 2012Q1

REPORT INFORMATION
  Report Type: 
  Country: None (occurrence: None)
  Receive Date: 20120217
  Receipt Date: 20120217
  Transmission Date: 20120608
  Serious: No
  Sender: FDA-Public Use
  Company Number: None

PATIENT
  Age: 62 Year
  Sex: Female
  Weight: 68.038 kg

DRUGS (1)
  1. ATENOLOL [Suspect]
     Indication: HYPERTENSION
     Dosage: 50.0 MG
     Dates: start: 20110801, end: 20111101

REACTIONS (4)
  - PRODUCT SUBSTITUTION ISSUE [None]
  - DYSPNOEA [None]
  - HYPERSENSITIVITY [None]
  - WHEEZING [None]
